FAERS Safety Report 25870981 (Version 1)
Quarter: 2025Q4

REPORT INFORMATION
  Report Type: Spontaneous
  Country: EU (occurrence: EU)
  Receive Date: 20251001
  Receipt Date: 20251001
  Transmission Date: 20260119
  Serious: Yes (Other)
  Sender: ASTELLAS
  Company Number: EU-ASTELLAS-2025-AER-053847

PATIENT
  Age: 77 Year
  Sex: Male

DRUGS (4)
  1. ENZALUTAMIDE [Suspect]
     Active Substance: ENZALUTAMIDE
     Indication: Prostate cancer
     Route: 065
     Dates: start: 202209, end: 202407
  2. ENZALUTAMIDE [Suspect]
     Active Substance: ENZALUTAMIDE
     Indication: Hormone therapy
  3. LEUPROLIDE [Suspect]
     Active Substance: LEUPROLIDE
     Indication: Prostate cancer
     Dosage: 11.25 MG/ML FOR 11 YEARS (SINCE 2011)
     Route: 065
     Dates: start: 2011
  4. LEUPROLIDE [Suspect]
     Active Substance: LEUPROLIDE
     Indication: Hormone therapy

REACTIONS (1)
  - Hereditary optic atrophy [Recovering/Resolving]

NARRATIVE: CASE EVENT DATE: 20230401
